FAERS Safety Report 7500632-8 (Version None)
Quarter: 2011Q2

REPORT INFORMATION
  Report Type: 
  Country: None (occurrence: None)
  Receive Date: 20110517
  Receipt Date: 20110502
  Transmission Date: 20111010
  Serious: Yes (Other)
  Sender: FDA-Public Use
  Company Number: MC201100199

PATIENT

DRUGS (6)
  1. ANGIOMAX [Suspect]
     Indication: PERCUTANEOUS CORONARY INTERVENTION
  2. NICKEL [Suspect]
     Indication: PERCUTANEOUS CORONARY INTERVENTION
  3. PACLITAXEL [Suspect]
     Indication: PERCUTANEOUS CORONARY INTERVENTION
  4. CLOPIDOGREL [Suspect]
     Indication: PERCUTANEOUS CORONARY INTERVENTION
  5. SIROLIMUS [Suspect]
     Indication: PERCUTANEOUS CORONARY INTERVENTION
  6. ASPIRIN [Suspect]
     Indication: PERCUTANEOUS CORONARY INTERVENTION

REACTIONS (4)
  - DRUG HYPERSENSITIVITY [None]
  - THROMBOSIS IN DEVICE [None]
  - DRUG RESISTANCE [None]
  - INFLAMMATION [None]
